FAERS Safety Report 5913240-7 (Version None)
Quarter: 2008Q4

REPORT INFORMATION
  Report Type: 
  Country: None (occurrence: None)
  Receive Date: 20081009
  Receipt Date: 20081008
  Transmission Date: 20090506
  Serious: Yes (Other)
  Sender: FDA-Public Use
  Company Number: GB-BRISTOL-MYERS SQUIBB COMPANY-14350904

PATIENT
  Age: 67 Year
  Sex: Male
  Weight: 77 kg

DRUGS (7)
  1. DASATINIB [Suspect]
     Dosage: DISCONTINUED IN FEB07.
     Dates: start: 20070101, end: 20070201
  2. IMATINIB MESILATE [Suspect]
     Dosage: STARTED WITH 400MG/DAY FROM 06FEB02;INCREASED TO 600MG/DAY IN JUL06; REDUCED TO 400MG/DAY IN FEB07.
     Route: 048
     Dates: start: 20060701
  3. AMITRIPTYLINE HCL [Concomitant]
  4. ATENOLOL [Concomitant]
  5. ACETAMINOPHEN W/ CODEINE [Concomitant]
  6. MS CONTIN [Concomitant]
  7. WARFARIN SODIUM [Concomitant]

REACTIONS (5)
  - DISEASE PROGRESSION [None]
  - DRUG RESISTANCE [None]
  - HAEMOGLOBIN DECREASED [None]
  - PLATELET COUNT INCREASED [None]
  - SKIN REACTION [None]
